FAERS Safety Report 6535079-4 (Version None)
Quarter: 2010Q1

REPORT INFORMATION
  Report Type: 
  Country: None (occurrence: None)
  Receive Date: 20100113
  Receipt Date: 20100108
  Transmission Date: 20100710
  Serious: Yes (Hospitalization, Other)
  Sender: FDA-Public Use
  Company Number: US-ASTRAZENECA-2008UW05824

PATIENT
  Age: 48 Year
  Sex: Female
  Weight: 78 kg

DRUGS (25)
  1. SEROQUEL [Suspect]
     Indication: BIPOLAR DISORDER
     Route: 048
     Dates: start: 19990501, end: 19991001
  2. SEROQUEL [Suspect]
     Route: 048
     Dates: start: 19991101, end: 20010901
  3. SEROQUEL [Suspect]
     Route: 048
     Dates: start: 19991101, end: 20010901
  4. SEROQUEL [Suspect]
     Route: 048
     Dates: start: 20011001, end: 20060401
  5. SEROQUEL [Suspect]
     Route: 048
     Dates: start: 20011001, end: 20060401
  6. SEROQUEL [Suspect]
     Route: 048
     Dates: start: 20011001, end: 20060401
  7. SEROQUEL [Suspect]
     Route: 048
     Dates: start: 20020503
  8. SEROQUEL [Suspect]
     Route: 048
     Dates: start: 20060321
  9. ABILIFY [Concomitant]
     Dates: start: 20070301
  10. HALDOL [Concomitant]
  11. RISPERDAL [Concomitant]
     Dates: start: 20030820, end: 20070101
  12. RISPERDAL [Concomitant]
     Dosage: 2 OR 2.5MG DAILY
     Dates: start: 20060321
  13. THORAZINE [Concomitant]
  14. ZYPREXA [Concomitant]
     Dosage: 2.5MG, 5MG, 10MG
     Dates: start: 20020503, end: 20031201
  15. DEPAKOTE [Concomitant]
     Dosage: 500 MG THREE AT NIGHT
     Dates: start: 20020503
  16. CELEXA [Concomitant]
  17. CLONAZEPAM [Concomitant]
     Dates: start: 20020601
  18. ALPRAZOLAM [Concomitant]
     Dates: start: 20020604
  19. ZYDONE [Concomitant]
     Dates: start: 20020604
  20. TOPAMAX [Concomitant]
     Dates: start: 20020615
  21. EFFEXOR XR [Concomitant]
     Dates: start: 20020923
  22. WELLBUTRIN SR [Concomitant]
     Dates: start: 20030625
  23. PRILOSEC [Concomitant]
     Dates: start: 20060321
  24. VALIUM [Concomitant]
     Dates: start: 20060321
  25. TRAZODONE HCL [Concomitant]
     Dates: start: 20060321

REACTIONS (6)
  - ANXIETY [None]
  - DEPRESSION [None]
  - HEPATIC CIRRHOSIS [None]
  - LIVER DISORDER [None]
  - OBESITY [None]
  - TYPE 2 DIABETES MELLITUS [None]
